FAERS Safety Report 9359064 (Version 1)
Quarter: 2013Q2

REPORT INFORMATION
  Report Type: Spontaneous
  Country: US (occurrence: US)
  Receive Date: 20130620
  Receipt Date: 20130620
  Transmission Date: 20140414
  Serious: Yes (Other)
  Sender: FDA-Public Use
  Company Number: US-US-EMD SERONO, INC.-235897K04USA

PATIENT
  Sex: Male

DRUGS (2)
  1. REBIF [Suspect]
     Indication: MULTIPLE SCLEROSIS
     Route: 058
     Dates: start: 20040908, end: 200412
  2. REBIF [Suspect]
     Route: 058
     Dates: start: 20050328

REACTIONS (2)
  - Hepatic enzyme increased [Recovered/Resolved]
  - Influenza like illness [Unknown]
